FAERS Safety Report 18275982 (Version 6)
Quarter: 2021Q1

REPORT INFORMATION
  Report Type: Report from Study
  Country: DE (occurrence: DE)
  Receive Date: 20200916
  Receipt Date: 20210225
  Transmission Date: 20210419
  Serious: Yes (Hospitalization)
  Sender: FDA-Public Use
  Company Number: DE-ROCHE-2675165

PATIENT
  Age: 63 Year
  Sex: Female
  Weight: 71 kg

DRUGS (7)
  1. EPIRUBICIN [Suspect]
     Active Substance: EPIRUBICIN
     Indication: TRIPLE NEGATIVE BREAST CANCER
     Dosage: FOR 4 DOSES.?MOST RECENT DOSE (119.48 MG) RECEIVED ON PRIOR TO ONSET OF WORSENING OF GENERAL PHYSICA
     Route: 042
     Dates: start: 20200708
  2. ATEZOLIZUMAB. [Suspect]
     Active Substance: ATEZOLIZUMAB
     Indication: TRIPLE NEGATIVE BREAST CANCER
     Dosage: FOR 10 DOSES.?MOST RECENT DOSE (840 MG) RECEIVED PRIOR TO WORSENING OF GENERAL PHYSICAL CONDITION (0
     Route: 041
     Dates: start: 20200416
  3. PEGFILGRASTIM [Suspect]
     Active Substance: PEGFILGRASTIM
     Route: 058
     Dates: start: 20200813, end: 20200813
  4. PACLITAXEL. [Suspect]
     Active Substance: PACLITAXEL
     Indication: TRIPLE NEGATIVE BREAST CANCER
     Dosage: MOST RECENT DOSE (141.6 MG) RECEIVED PRIOR TO ONSET OF WORSENING OF GENERAL PHYSICAL CONDITION (01/J
     Route: 042
     Dates: start: 20200416
  5. CYCLOPHOSPHAMIDE. [Suspect]
     Active Substance: CYCLOPHOSPHAMIDE
     Indication: TRIPLE NEGATIVE BREAST CANCER
     Dosage: FOR 4 DOSES.?MOST RECENT DOSE (796.5 MG) RECEIVED ON PRIOR TO WORSENING OF GENERAL PHYSICAL CONDITIO
     Route: 042
     Dates: start: 20200708
  6. PEGFILGRASTIM [Suspect]
     Active Substance: PEGFILGRASTIM
     Indication: TRIPLE NEGATIVE BREAST CANCER
     Route: 058
     Dates: start: 20200709, end: 20200709
  7. PEGFILGRASTIM [Suspect]
     Active Substance: PEGFILGRASTIM
     Route: 058
     Dates: start: 20200723, end: 20200723

REACTIONS (2)
  - General physical health deterioration [Not Recovered/Not Resolved]
  - Hypothyroidism [Not Recovered/Not Resolved]

NARRATIVE: CASE EVENT DATE: 20200907
